FAERS Safety Report 8247336-4 (Version None)
Quarter: 2012Q1

REPORT INFORMATION
  Report Type: 
  Country: None (occurrence: None)
  Receive Date: 20120330
  Receipt Date: 20120323
  Transmission Date: 20120608
  Serious: Yes (Other)
  Sender: FDA-Public Use
  Company Number: US-JNJFOC-20100300690

PATIENT
  Sex: Male

DRUGS (5)
  1. PRAVACHOL [Concomitant]
     Indication: BLOOD CHOLESTEROL DECREASED
     Route: 065
  2. ZOCOR [Concomitant]
     Indication: BLOOD CHOLESTEROL DECREASED
     Route: 065
  3. LEVAQUIN [Suspect]
     Indication: SINUSITIS
     Route: 048
  4. MELOXICAM [Concomitant]
     Indication: NECK PAIN
     Route: 065
  5. MELOXICAM [Concomitant]
     Indication: BACK PAIN
     Route: 065

REACTIONS (4)
  - TENOSYNOVITIS [None]
  - TENDON RUPTURE [None]
  - BURSITIS [None]
  - ROTATOR CUFF SYNDROME [None]
